FAERS Safety Report 8101674-4 (Version None)
Quarter: 2012Q1

REPORT INFORMATION
  Report Type: 
  Country: None (occurrence: None)
  Receive Date: 20120129
  Receipt Date: 20111013
  Transmission Date: 20120608
  Serious: No
  Sender: FDA-Public Use
  Company Number: US-ABBOTT-11P-163-0863470-00

PATIENT
  Age: 42 Year
  Sex: Female

DRUGS (8)
  1. GABAPENTIN [Concomitant]
     Indication: NEUROPATHY PERIPHERAL
  2. METHOTREXATE [Concomitant]
     Indication: PSORIATIC ARTHROPATHY
  3. FOBIC [Concomitant]
     Indication: PSORIATIC ARTHROPATHY
     Dosage: DAILY
  4. TOPAMAX [Concomitant]
     Indication: NEUROPATHY PERIPHERAL
  5. WOMENS MULTIVITAMIN-IRON FREE [Concomitant]
     Indication: PRODUCT USED FOR UNKNOWN INDICATION
  6. HUMIRA [Suspect]
     Indication: PSORIATIC ARTHROPATHY
     Dates: start: 20110826
  7. DETROL LA [Concomitant]
     Indication: BLADDER DISORDER
  8. NAPROXEN (ALEVE) [Concomitant]
     Indication: PAIN

REACTIONS (3)
  - NAUSEA [None]
  - VERTIGO [None]
  - DIZZINESS [None]
